FAERS Safety Report 4534609-1 (Version None)
Quarter: 2004Q4

REPORT INFORMATION
  Report Type: 
  Country: None (occurrence: None)
  Receive Date: 20041222
  Receipt Date: 20041025
  Transmission Date: 20050328
  Serious: Yes (Hospitalization, Other)
  Sender: FDA-Public Use
  Company Number: JP-ABBOTT-04P-087-0278510-00

PATIENT
  Sex: Male

DRUGS (11)
  1. VASOLAN [Suspect]
     Indication: ATRIAL FIBRILLATION
     Route: 042
     Dates: start: 20041011
  2. ATROPINE SULFATE [Suspect]
     Indication: BRADYCARDIA
     Route: 042
     Dates: start: 20041011
  3. CARVEDILOL [Concomitant]
     Indication: ANGINA PECTORIS
     Route: 048
     Dates: start: 20020530, end: 20041011
  4. CARVEDILOL [Concomitant]
     Indication: HYPERTENSION
  5. EFONIDIPINE HYDROCHLORIDE [Concomitant]
     Indication: ANGINA PECTORIS
     Route: 048
     Dates: start: 20020625
  6. EFONIDIPINE HYDROCHLORIDE [Concomitant]
     Indication: HYPERTENSION
  7. ACETYLSALICYLIC ACID [Concomitant]
     Indication: ANGINA PECTORIS
     Route: 048
     Dates: start: 20020530
  8. ISOSORBIDE DINITRATE [Concomitant]
     Indication: ANGINA PECTORIS
     Dates: start: 20020530
  9. GLIMEPIRIDE [Concomitant]
     Indication: DIABETES MELLITUS
     Route: 048
     Dates: start: 20020530
  10. BEZAFIBRATE [Concomitant]
     Indication: HYPERLIPIDAEMIA
     Route: 048
     Dates: start: 20020530
  11. PHYSISALZ-PL [Concomitant]
     Indication: MEDICATION DILUTION
     Route: 042
     Dates: start: 20041011

REACTIONS (5)
  - BRADYCARDIA [None]
  - DEPRESSED LEVEL OF CONSCIOUSNESS [None]
  - NAUSEA [None]
  - PALLOR [None]
  - SHOCK [None]
